FAERS Safety Report 21705721 (Version 3)
Quarter: 2022Q4

REPORT INFORMATION
  Report Type: Spontaneous
  Country: CA (occurrence: CA)
  Receive Date: 20221209
  Receipt Date: 20221227
  Transmission Date: 20230113
  Serious: Yes (Other)
  Sender: FDA-Public Use
  Company Number: CA-MYLANLABS-2022M1136109

PATIENT
  Sex: Male
  Weight: 67.8 kg

DRUGS (3)
  1. LYRICA [Suspect]
     Active Substance: PREGABALIN
     Indication: Product used for unknown indication
     Dosage: 67.8 MILLIGRAM
     Route: 065
  2. LYRICA [Suspect]
     Active Substance: PREGABALIN
     Dosage: 25 MILLIGRAM, BID
     Route: 065
  3. PADCEV [Suspect]
     Active Substance: ENFORTUMAB VEDOTIN-EJFV
     Indication: Transitional cell carcinoma
     Dosage: 66 MILLIGRAM
     Route: 065

REACTIONS (6)
  - Neuropathy peripheral [Not Recovered/Not Resolved]
  - Nail discolouration [Unknown]
  - Condition aggravated [Unknown]
  - Oral pain [Unknown]
  - Weight decreased [Unknown]
  - Balance disorder [Recovering/Resolving]

NARRATIVE: CASE EVENT DATE: 20221122
